FAERS Safety Report 26121456 (Version 1)
Quarter: 2025Q4

REPORT INFORMATION
  Report Type: Spontaneous
  Country: US (occurrence: US)
  Receive Date: 20251204
  Receipt Date: 20251204
  Transmission Date: 20260118
  Serious: Yes (Other)
  Sender: MYLAN
  Company Number: US-MYLANLABS-2025M1102863

PATIENT
  Age: 53 Year
  Sex: Male

DRUGS (4)
  1. CALCITONIN SALMON [Suspect]
     Active Substance: CALCITONIN SALMON
     Indication: Bone density increased
     Dosage: UNK
  2. CALCITONIN SALMON [Suspect]
     Active Substance: CALCITONIN SALMON
     Dosage: UNK
     Route: 065
  3. CALCITONIN SALMON [Suspect]
     Active Substance: CALCITONIN SALMON
     Dosage: UNK
     Route: 065
  4. CALCITONIN SALMON [Suspect]
     Active Substance: CALCITONIN SALMON
     Dosage: UNK

REACTIONS (1)
  - Drug ineffective [Unknown]
